FAERS Safety Report 10953099 (Version 1)
Quarter: 2015Q1

REPORT INFORMATION
  Report Type: Spontaneous
  Country: DK (occurrence: None)
  Receive Date: 20150323
  Receipt Date: 20150323
  Transmission Date: 20150721
  Serious: Yes (Life-Threatening)
  Sender: FDA-Public Use
  Company Number: FK201201258

PATIENT
  Age: 8 Year
  Sex: Female

DRUGS (2)
  1. CEFTAZIDIME. [Concomitant]
     Active Substance: CEFTAZIDIME
  2. COLISTIMETHATE (COLISTIMETHATE SODIUM) (COLISTIMETHATE SODIUM) [Suspect]
     Active Substance: COLISTIMETHATE SODIUM
     Indication: PSEUDOMONAS INFECTION
     Route: 055
     Dates: start: 200604

REACTIONS (2)
  - Off label use [None]
  - Asthma [None]

NARRATIVE: CASE EVENT DATE: 2007
